FAERS Safety Report 18745442 (Version 1)
Quarter: 2021Q1

REPORT INFORMATION
  Report Type: Spontaneous
  Country: AU (occurrence: AU)
  Receive Date: 20210115
  Receipt Date: 20210115
  Transmission Date: 20210419
  Serious: Yes (Other)
  Sender: FDA-Public Use
  Company Number: AU-STRIDES ARCOLAB LIMITED-2021SP000795

PATIENT
  Age: 74 Year
  Sex: Male

DRUGS (4)
  1. KETOROLAC [Concomitant]
     Active Substance: KETOROLAC TROMETHAMINE
     Indication: PRODUCT USED FOR UNKNOWN INDICATION
     Dosage: UNK, TAPERED OFF AFTER ONE MONTH
     Route: 065
  2. TRIAMCINOLONE ACETONIDE. [Suspect]
     Active Substance: TRIAMCINOLONE ACETONIDE
     Indication: MACULAR OEDEMA
     Dosage: 40 MILLIGRAM PER MILLILITRE (1ML) ( INFERONASAL INJECTION OF SUBTENON)
     Route: 065
  3. PHENYLEPHRINE HYDROCHLORIDE;PREDNISOLONE ACETATE [Suspect]
     Active Substance: PHENYLEPHRINE HYDROCHLORIDE\PREDNISOLONE ACETATE
     Indication: PRODUCT USED FOR UNKNOWN INDICATION
     Dosage: DROPS OF PREDNISOLONE ACETATE 1%/PENYLEPHRINE
     Route: 065
  4. CHLORAMPHENICOL [Concomitant]
     Active Substance: CHLORAMPHENICOL
     Indication: PRODUCT USED FOR UNKNOWN INDICATION
     Dosage: UNK, TAPERED OFF AFTER ONE MONTH
     Route: 065

REACTIONS (1)
  - Chorioretinopathy [Recovered/Resolved]
